FAERS Safety Report 8611308-8 (Version None)
Quarter: 2012Q3

REPORT INFORMATION
  Report Type: 
  Country: None (occurrence: None)
  Receive Date: 20120822
  Receipt Date: 20120813
  Transmission Date: 20120928
  Serious: Yes (Hospitalization)
  Sender: FDA-Public Use
  Company Number: DE-PFIZER INC-2012200804

PATIENT
  Sex: Female
  Weight: 70 kg

DRUGS (5)
  1. ASPIRIN TAB [Concomitant]
     Indication: ISCHAEMIC HEART DISEASE PROPHYLAXIS
     Dosage: UNK
     Dates: start: 20100716
  2. LEVOTHYROXINE [Concomitant]
     Indication: BLOOD THYROID STIMULATING HORMONE DECREASED
     Dosage: NK
     Dates: start: 19981115
  3. GENOTROPIN [Suspect]
     Dosage: 0.4 MG, 7/WK
     Route: 058
     Dates: start: 20040503
  4. LOSARTAN [Concomitant]
     Indication: HYPERTENSION
     Dosage: UNK
     Dates: start: 20100101
  5. OSPUR D3 [Concomitant]
     Indication: OSTEOPOROSIS
     Dosage: NK
     Dates: start: 20001110

REACTIONS (1)
  - INFLAMMATION [None]
